FAERS Safety Report 6897010-1 (Version None)
Quarter: 2010Q3

REPORT INFORMATION
  Report Type: 
  Country: None (occurrence: None)
  Receive Date: 20100802
  Receipt Date: 20070306
  Transmission Date: 20110219
  Serious: Yes (Other)
  Sender: FDA-Public Use
  Company Number: US-PFIZER INC-2007018194

PATIENT
  Sex: Female
  Weight: 41.3 kg

DRUGS (4)
  1. LYRICA [Suspect]
     Indication: NEURALGIA
     Dates: start: 20060601
  2. DILANTIN [Concomitant]
  3. TEGRETOL [Concomitant]
  4. ALL OTHER THERAPEUTIC PRODUCTS [Concomitant]

REACTIONS (9)
  - DRUG INEFFECTIVE [None]
  - DRY SKIN [None]
  - FATIGUE [None]
  - HYPOPHAGIA [None]
  - LETHARGY [None]
  - RASH PRURITIC [None]
  - SOMNOLENCE [None]
  - VISION BLURRED [None]
  - WEIGHT DECREASED [None]
